FAERS Safety Report 7019059-0 (Version None)
Quarter: 2010Q3

REPORT INFORMATION
  Report Type: 
  Country: None (occurrence: None)
  Receive Date: 20100928
  Receipt Date: 20100923
  Transmission Date: 20110219
  Serious: Yes (Hospitalization)
  Sender: FDA-Public Use
  Company Number: A0877007A

PATIENT
  Age: 45 Year
  Sex: Female
  Weight: 90.9 kg

DRUGS (5)
  1. TYKERB [Suspect]
     Indication: BREAST CANCER
     Dosage: 1250MG PER DAY
     Route: 048
     Dates: start: 20100201, end: 20100201
  2. MOBIC [Concomitant]
     Dosage: 7.5MG PER DAY
     Route: 048
  3. VICODIN [Concomitant]
     Dosage: 5MG AS REQUIRED
     Route: 048
  4. XANAX [Concomitant]
     Dosage: .25MG AS REQUIRED
     Route: 048
  5. EFFEXOR XR [Concomitant]
     Dosage: 37.5MG TWICE PER DAY
     Route: 048

REACTIONS (1)
  - CRANIAL NERVE INJURY [None]
